FAERS Safety Report 23133885 (Version 1)
Quarter: 2023Q4

REPORT INFORMATION
  Report Type: Spontaneous
  Country: KR (occurrence: KR)
  Receive Date: 20231101
  Receipt Date: 20231101
  Transmission Date: 20240110
  Serious: Yes (Hospitalization, Other)
  Sender: FDA-Public Use
  Company Number: KR-MLMSERVICE-20230929-4573895-1

PATIENT
  Sex: Female

DRUGS (5)
  1. HYDROCORTISONE [Suspect]
     Active Substance: HYDROCORTISONE
     Indication: Electrolyte imbalance
     Dosage: UNK
     Route: 065
  2. HYDROCORTISONE [Suspect]
     Active Substance: HYDROCORTISONE
     Indication: Adrenal insufficiency neonatal
     Dosage: GRADUALLY INCREASED,
     Route: 065
  3. FLUDROCORTISONE [Suspect]
     Active Substance: FLUDROCORTISONE
     Indication: Adrenal insufficiency neonatal
     Dosage: UNK
     Route: 065
  4. FLUDROCORTISONE [Suspect]
     Active Substance: FLUDROCORTISONE
     Indication: Electrolyte imbalance
     Dosage: GRADUALLY INCREASED
     Route: 065
  5. RACECADOTRIL [Concomitant]
     Active Substance: RACECADOTRIL
     Indication: Diarrhoea
     Dosage: UNK
     Route: 065

REACTIONS (6)
  - Pneumonia aspiration [Unknown]
  - Pneumonia [Unknown]
  - Pneumonia klebsiella [Unknown]
  - Klebsiella sepsis [Unknown]
  - Urinary tract infection [Unknown]
  - Cushingoid [Unknown]
